FAERS Safety Report 9404341 (Version 2)
Quarter: 2013Q4

REPORT INFORMATION
  Report Type: Spontaneous
  Country: US (occurrence: None)
  Receive Date: 20130715
  Receipt Date: 20131127
  Transmission Date: 20140711
  Serious: Yes (Hospitalization, Other)
  Sender: FDA-Public Use
  Company Number: AUR-APL-2013-05203

PATIENT
  Age: 73 Year
  Sex: Male
  Weight: 93 kg

DRUGS (13)
  1. LISINOPRIL [Suspect]
     Indication: HYPERTENSION
     Dosage: 80 MG (80 MG, 1 IN 1 D), ORAL
     Route: 048
     Dates: start: 20020701, end: 20130612
  2. EPLERENONE [Suspect]
     Indication: HYPERTENSION
     Dosage: 50 MG (50 MG, 1 IN 1 D), ORAL
     Route: 048
     Dates: start: 20121023, end: 20130612
  3. CHLORTHALIDONE [Suspect]
     Indication: HYPERTENSION
     Dosage: 25 MG (25 MG, 1 IN 1 D), ORAL
     Route: 048
     Dates: start: 20110208, end: 20130612
  4. NEXIUM I.V. [Concomitant]
  5. ATENOLOL (ATENOLOL) [Concomitant]
  6. ACETYLSALICYLIC ACID (ACETYLSALICYLIC ACID) [Concomitant]
  7. AMLODIPINE BESILATE (AMLODIPINE BESILATE) [Concomitant]
  8. CALCIUM (CALCIUM) [Concomitant]
  9. SIMVASTATIN (SIMVASTATIN) [Concomitant]
  10. FINASTERIDE (FINASTERIDE) [Concomitant]
  11. DOXAZOSIN MESILATE (DOXAZOSIN MESILATE) [Concomitant]
  12. MULTIVITAMIN (VIGRAN) [Concomitant]
  13. MEGA D3 (CALCIUM D3) [Concomitant]

REACTIONS (6)
  - Pyelonephritis acute [None]
  - Sepsis [None]
  - Escherichia bacteraemia [None]
  - Renal failure acute [None]
  - Diverticulum [None]
  - Dehydration [None]
